FAERS Safety Report 6324497-5 (Version None)
Quarter: 2009Q3

REPORT INFORMATION
  Report Type: 
  Country: None (occurrence: None)
  Receive Date: 20090820
  Receipt Date: 20090807
  Transmission Date: 20100115
  Serious: Yes (Hospitalization)
  Sender: FDA-Public Use
  Company Number: 1000007206

PATIENT
  Age: 58 Year
  Sex: Female

DRUGS (5)
  1. ESCITALOPRAM [Suspect]
     Dosage: ORAL
     Route: 048
  2. VOLTAREN [Suspect]
     Dosage: (50 MG), ORAL
     Route: 048
     Dates: start: 20090501, end: 20090508
  3. BLOPRESS      (TABLETS) [Concomitant]
  4. INDERAL [Concomitant]
  5. IMIGRAN [Concomitant]

REACTIONS (3)
  - ANAEMIA [None]
  - ASTHENIA [None]
  - GASTRIC ULCER HAEMORRHAGE [None]
